FAERS Safety Report 18496531 (Version 1)
Quarter: 2020Q4

REPORT INFORMATION
  Report Type: Spontaneous
  Country: GB (occurrence: GB)
  Receive Date: 20201112
  Receipt Date: 20201112
  Transmission Date: 20210114
  Serious: Yes (Other)
  Sender: FDA-Public Use
  Company Number: NVSC2020GB300723

PATIENT
  Age: 67 Year
  Sex: Female
  Weight: 51 kg

DRUGS (1)
  1. LUTATHERA [Suspect]
     Active Substance: LUTETIUM OXODOTREOTIDE LU-177
     Indication: PANCREATIC NEUROENDOCRINE TUMOUR METASTATIC
     Dosage: 7689 MBQ, 8 WEEKLY
     Route: 042
     Dates: start: 20191128

REACTIONS (2)
  - Oesophageal varices haemorrhage [Not Recovered/Not Resolved]
  - Hepatic failure [Not Recovered/Not Resolved]

NARRATIVE: CASE EVENT DATE: 20200723
